FAERS Safety Report 12972127 (Version 2)
Quarter: 2017Q1

REPORT INFORMATION
  Report Type: Spontaneous
  Country: US (occurrence: US)
  Receive Date: 20161124
  Receipt Date: 20170206
  Transmission Date: 20170428
  Serious: No
  Sender: FDA-Public Use
  Company Number: US-ASTRAZENECA-2016SF18349

PATIENT
  Age: 66 Year
  Sex: Female
  Weight: 54.4 kg

DRUGS (6)
  1. SPIRIVA [Concomitant]
     Active Substance: TIOTROPIUM BROMIDE MONOHYDRATE
     Indication: SINUSITIS
     Route: 055
     Dates: start: 201509
  2. SPIRIVA [Concomitant]
     Active Substance: TIOTROPIUM BROMIDE MONOHYDRATE
     Indication: NASOPHARYNGITIS
     Route: 055
     Dates: start: 201509
  3. LANTUS GLARGINE [Concomitant]
     Indication: DIABETES MELLITUS
     Dosage: 4 TWO TIMES A DAY
     Route: 058
     Dates: start: 1986
  4. SYMBICORT [Suspect]
     Active Substance: BUDESONIDE\FORMOTEROL FUMARATE DIHYDRATE
     Indication: ASTHMA
     Dosage: 80/4.5 MCG ONE TO TWO PUFFS, ONE TO TWO TIMES DAILY
     Route: 055
     Dates: start: 2006
  5. SYMBICORT [Suspect]
     Active Substance: BUDESONIDE\FORMOTEROL FUMARATE DIHYDRATE
     Indication: COUGH
     Dosage: 80/4.5 MCG ONE TO TWO PUFFS, ONE TO TWO TIMES DAILY
     Route: 055
     Dates: start: 2006
  6. NOVOLOG [Concomitant]
     Active Substance: INSULIN ASPART
     Indication: DIABETES MELLITUS
     Route: 058
     Dates: start: 2001

REACTIONS (10)
  - Product use issue [Unknown]
  - Blood glucose decreased [Unknown]
  - Drug ineffective [Unknown]
  - Blood glucose increased [Unknown]
  - Bone density decreased [Unknown]
  - Intentional product misuse [Unknown]
  - Arthritis [Unknown]
  - Infection [Unknown]
  - Off label use [Unknown]
  - Device malfunction [Unknown]

NARRATIVE: CASE EVENT DATE: 2006
